FAERS Safety Report 10360684 (Version 5)
Quarter: 2015Q3

REPORT INFORMATION
  Report Type: Report from Study
  Country: JP (occurrence: JP)
  Receive Date: 20140804
  Receipt Date: 20150713
  Transmission Date: 20151125
  Serious: Yes (Death, Other)
  Sender: FDA-Public Use
  Company Number: JP-GLAXOSMITHKLINE-B0992793A

PATIENT
  Age: 77 Year
  Sex: Male

DRUGS (26)
  1. PREDNISOLONE. [Concomitant]
     Active Substance: PREDNISOLONE
     Dosage: UNK
     Dates: start: 20140509, end: 20140509
  2. PREDNISOLONE. [Concomitant]
     Active Substance: PREDNISOLONE
     Dosage: UNK
     Dates: start: 20140516, end: 20140516
  3. PREDNISOLONE. [Concomitant]
     Active Substance: PREDNISOLONE
     Indication: PREMEDICATION
     Dosage: UNK
     Dates: start: 20140502, end: 20140502
  4. OFATUMUMAB [Suspect]
     Active Substance: OFATUMUMAB
     Dosage: 2000 MG, QD
     Route: 041
     Dates: start: 20140516, end: 20140516
  5. OFATUMUMAB [Suspect]
     Active Substance: OFATUMUMAB
     Dosage: 2000 MG, QD
     Route: 041
     Dates: start: 20140611, end: 20140611
  6. NIPOLAZIN [Concomitant]
     Indication: PREMEDICATION
     Dosage: UNK
     Dates: start: 20140502, end: 20140502
  7. ACETAMINOPHEN. [Concomitant]
     Active Substance: ACETAMINOPHEN
     Dosage: UNK
     Dates: start: 20140516, end: 20140516
  8. ISCOTIN (JAPAN) [Concomitant]
     Indication: INFECTION PROPHYLAXIS
     Dosage: UNK
  9. OFATUMUMAB [Suspect]
     Active Substance: OFATUMUMAB
     Dosage: 2000 MG, QD
     Route: 041
     Dates: start: 20140509, end: 20140509
  10. OFATUMUMAB [Suspect]
     Active Substance: OFATUMUMAB
     Dosage: 2000 MG, QD
     Route: 041
     Dates: start: 20140604, end: 20140604
  11. NIPOLAZIN [Concomitant]
     Dosage: UNK
     Dates: start: 20140509, end: 20140509
  12. NIPOLAZIN [Concomitant]
     Dosage: UNK
     Dates: start: 20140516, end: 20140516
  13. BACTRAMIN [Concomitant]
     Active Substance: SULFAMETHOXAZOLE\TRIMETHOPRIM
     Indication: INFECTION PROPHYLAXIS
     Dosage: UNK
  14. OFATUMUMAB [Suspect]
     Active Substance: OFATUMUMAB
     Indication: CHRONIC LYMPHOCYTIC LEUKAEMIA
     Dosage: 300 MG, QD
     Route: 041
     Dates: start: 20140502, end: 20140502
  15. OFATUMUMAB [Suspect]
     Active Substance: OFATUMUMAB
     Dosage: 2000 MG, QD
     Route: 041
     Dates: start: 20140523, end: 20140523
  16. PREDNISOLONE. [Concomitant]
     Active Substance: PREDNISOLONE
     Dosage: UNK
     Dates: start: 20140523, end: 20140523
  17. PREDNISOLONE. [Concomitant]
     Active Substance: PREDNISOLONE
     Dosage: UNK
     Dates: start: 20140604, end: 20140604
  18. ACETAMINOPHEN. [Concomitant]
     Active Substance: ACETAMINOPHEN
     Indication: PREMEDICATION
     Dosage: UNK
     Dates: start: 20140502, end: 20140502
  19. ACETAMINOPHEN. [Concomitant]
     Active Substance: ACETAMINOPHEN
     Dosage: UNK
     Dates: start: 20140611, end: 20140611
  20. ACETAMINOPHEN. [Concomitant]
     Active Substance: ACETAMINOPHEN
     Dosage: UNK
     Dates: start: 20140509, end: 20140509
  21. ACETAMINOPHEN. [Concomitant]
     Active Substance: ACETAMINOPHEN
     Dosage: UNK
     Dates: start: 20140523, end: 20140523
  22. NIPOLAZIN [Concomitant]
     Dosage: UNK
     Dates: start: 20140523, end: 20140523
  23. PREDNISOLONE. [Concomitant]
     Active Substance: PREDNISOLONE
     Dosage: UNK
     Dates: start: 20140611, end: 20140611
  24. ACETAMINOPHEN. [Concomitant]
     Active Substance: ACETAMINOPHEN
     Dosage: UNK
     Dates: start: 20140604, end: 20140604
  25. NIPOLAZIN [Concomitant]
     Dosage: UNK
     Dates: start: 20140604, end: 20140604
  26. NIPOLAZIN [Concomitant]
     Dosage: UNK
     Dates: start: 20140611, end: 20140611

REACTIONS (3)
  - Disease progression [Recovered/Resolved]
  - Gastric cancer [Fatal]
  - Urticaria [Recovered/Resolved]

NARRATIVE: CASE EVENT DATE: 20140502
